FAERS Safety Report 6024078-7 (Version None)
Quarter: 2008Q4

REPORT INFORMATION
  Report Type: 
  Country: None (occurrence: None)
  Receive Date: 20081224
  Receipt Date: 20081212
  Transmission Date: 20090506
  Serious: Yes (Hospitalization)
  Sender: FDA-Public Use
  Company Number: 2008AP003419

PATIENT
  Age: 58 Year
  Sex: Female

DRUGS (3)
  1. PAROXETINE HCL [Suspect]
     Dosage: 20 MG; QD
  2. LORAZEPAM [Suspect]
     Indication: DEPRESSION
  3. LORMETAZEPAM (LORMETAZEPAM) [Suspect]
     Indication: DEPRESSION

REACTIONS (7)
  - BLOOD OSMOLARITY DECREASED [None]
  - COMA [None]
  - DRUG INTERACTION [None]
  - GRAND MAL CONVULSION [None]
  - HYPOCHLORAEMIA [None]
  - HYPONATRAEMIA [None]
  - RHABDOMYOLYSIS [None]
